FAERS Safety Report 24118345 (Version 2)
Quarter: 2025Q4

REPORT INFORMATION
  Report Type: Other
  Country: EU (occurrence: EU)
  Receive Date: 20240722
  Receipt Date: 20251212
  Transmission Date: 20260118
  Serious: Yes (Hospitalization, Other)
  Sender: BIOCON
  Company Number: EU-ROCHE-3321031

PATIENT

DRUGS (3)
  1. ADO-TRASTUZUMAB EMTANSINE [Suspect]
     Active Substance: ADO-TRASTUZUMAB EMTANSINE
     Indication: Product used for unknown indication
     Dosage: UNK
     Route: 065
  2. CAPECITABINE [Suspect]
     Active Substance: CAPECITABINE
     Indication: Product used for unknown indication
     Dosage: UNK
     Route: 065
  3. TUKYSA [Suspect]
     Active Substance: TUCATINIB
     Indication: Product used for unknown indication
     Dosage: UNK
     Route: 065

REACTIONS (2)
  - Hepatic failure [Recovered/Resolved]
  - Coagulopathy [Recovered/Resolved]

NARRATIVE: CASE EVENT DATE: 20230131
